FAERS Safety Report 8661917 (Version 6)
Quarter: 2013Q4

REPORT INFORMATION
  Report Type: Spontaneous
  Country: US (occurrence: US)
  Receive Date: 20120712
  Receipt Date: 20131029
  Transmission Date: 20140711
  Serious: Yes (Other)
  Sender: FDA-Public Use
  Company Number: US-ASTRAZENECA-2012SE45736

PATIENT
  Age: 63 Year
  Sex: Female
  Weight: 59 kg

DRUGS (10)
  1. NEXIUM [Suspect]
     Indication: DYSPEPSIA
     Route: 048
  2. NEXIUM [Suspect]
     Indication: GASTROOESOPHAGEAL REFLUX DISEASE
     Route: 048
  3. NEXIUM [Suspect]
     Indication: DYSPEPSIA
     Route: 048
  4. NEXIUM [Suspect]
     Indication: GASTROOESOPHAGEAL REFLUX DISEASE
     Route: 048
  5. LISINOPRIL [Suspect]
     Route: 048
  6. CRESTOR [Suspect]
     Route: 048
  7. AMBIEN [Concomitant]
  8. TEGRETOL [Concomitant]
  9. HYDROCODONE-ACETAMINOPHEN [Concomitant]
     Indication: TRIGEMINAL NEURALGIA
     Dosage: 5-325 MG
  10. TYLENOL CODEINE [Concomitant]
     Indication: PAIN
     Dosage: 300-30 MG, 1-2, 4 TIMES PER DAY (PRN)
     Route: 048

REACTIONS (20)
  - Upper limb fracture [Unknown]
  - Rib fracture [Unknown]
  - Contusion [Unknown]
  - Fall [Unknown]
  - Humerus fracture [Unknown]
  - Upper limb fracture [Unknown]
  - Ligament sprain [Unknown]
  - Hypertension [Unknown]
  - Hypercholesterolaemia [Unknown]
  - Trigeminal neuralgia [Unknown]
  - Body height decreased [Unknown]
  - Eructation [Unknown]
  - Malaise [Unknown]
  - Dyspepsia [Unknown]
  - Gastrooesophageal reflux disease [Unknown]
  - Sinusitis [Unknown]
  - Burning sensation [Unknown]
  - Memory impairment [Unknown]
  - Drug dose omission [Unknown]
  - Off label use [Unknown]
